FAERS Safety Report 6518496-8 (Version None)
Quarter: 2009Q4

REPORT INFORMATION
  Report Type: 
  Country: None (occurrence: None)
  Receive Date: 20091226
  Receipt Date: 20091216
  Transmission Date: 20100525
  Serious: Yes (Other)
  Sender: FDA-Public Use
  Company Number: US-JNJFOC-20060204993

PATIENT
  Sex: Male
  Weight: 102.51 kg

DRUGS (6)
  1. RISPERDAL [Suspect]
     Indication: PANIC DISORDER
     Route: 065
  2. RISPERDAL [Suspect]
     Indication: DEPRESSION
     Route: 065
  3. ZYPREXA [Suspect]
     Indication: ANXIETY
  4. ZYPREXA [Suspect]
     Indication: DEPRESSION
  5. SEROQUEL [Suspect]
     Indication: PANIC ATTACK
     Route: 065
  6. SEROQUEL [Suspect]
     Indication: SLEEP DISORDER
     Route: 065

REACTIONS (2)
  - AKATHISIA [None]
  - DIABETES MELLITUS [None]
